FAERS Safety Report 9815386 (Version 3)
Quarter: 2016Q3

REPORT INFORMATION
  Report Type: Report from Study
  Country: US (occurrence: US)
  Receive Date: 20140114
  Receipt Date: 20160805
  Transmission Date: 20161109
  Serious: Yes (Other)
  Sender: FDA-Public Use
  Company Number: US-ROCHE-769790

PATIENT
  Age: 12 Year
  Sex: Female

DRUGS (1)
  1. VISMODEGIB [Suspect]
     Active Substance: VISMODEGIB
     Indication: MEDULLOBLASTOMA
     Dosage: 300 MG, QD, LAST DOSE PRIOR TO SAE: 25/OCT/2010
     Route: 048
     Dates: start: 20101004, end: 20101025

REACTIONS (2)
  - Lymphocyte count decreased [Unknown]
  - Pain in extremity [Unknown]

NARRATIVE: CASE EVENT DATE: 20101021
